FAERS Safety Report 10482881 (Version 3)
Quarter: 2014Q4

REPORT INFORMATION
  Report Type: Spontaneous
  Country: JP (occurrence: JP)
  Receive Date: 20140929
  Receipt Date: 20141106
  Transmission Date: 20150528
  Serious: Yes (Hospitalization, Other)
  Sender: FDA-Public Use
  Company Number: PHHY2014JP121740

PATIENT
  Age: 80 Year
  Sex: Male

DRUGS (2)
  1. GLIVEC [Suspect]
     Active Substance: IMATINIB MESYLATE
     Indication: CHRONIC MYELOID LEUKAEMIA
     Dosage: 400 MG, QD
     Route: 048
     Dates: start: 200509
  2. GLIVEC [Suspect]
     Active Substance: IMATINIB MESYLATE
     Route: 048

REACTIONS (2)
  - Second primary malignancy [Unknown]
  - Colon cancer [Unknown]

NARRATIVE: CASE EVENT DATE: 20140917
